FAERS Safety Report 13561949 (Version 5)
Quarter: 2019Q1

REPORT INFORMATION
  Report Type: Report from Study
  Country: US (occurrence: US)
  Receive Date: 20170518
  Receipt Date: 20190129
  Transmission Date: 20190417
  Serious: Yes (Other)
  Sender: FDA-Public Use
  Company Number: PHHY2017US071987

PATIENT
  Age: 65 Year
  Sex: Female

DRUGS (1)
  1. GILENYA [Suspect]
     Active Substance: FINGOLIMOD HYDROCHLORIDE
     Indication: MULTIPLE SCLEROSIS
     Dosage: UNK, QD
     Route: 048

REACTIONS (12)
  - Fatigue [Unknown]
  - Muscular weakness [Unknown]
  - White blood cell count decreased [Unknown]
  - Memory impairment [Unknown]
  - Paraesthesia [Unknown]
  - Muscle spasticity [Unknown]
  - Renal cyst [Unknown]
  - Hemiparesis [Unknown]
  - Urinary tract infection [Unknown]
  - Lymphocyte count decreased [Unknown]
  - Hypoaesthesia [Unknown]
  - Muscle spasms [Unknown]

NARRATIVE: CASE EVENT DATE: 20160919
